FAERS Safety Report 11211735 (Version 1)
Quarter: 2015Q2

REPORT INFORMATION
  Report Type: Spontaneous
  Country: US (occurrence: None)
  Receive Date: 20150619
  Receipt Date: 20150619
  Transmission Date: 20150821
  Serious: Yes (Hospitalization)
  Sender: FDA-Public Use
  Company Number: None

PATIENT
  Age: 76 Year
  Sex: Female
  Weight: 58.3 kg

DRUGS (14)
  1. VITB12 [Concomitant]
  2. FLEXERIL [Concomitant]
     Active Substance: CYCLOBENZAPRINE HYDROCHLORIDE
  3. LASIX [Concomitant]
     Active Substance: FUROSEMIDE
  4. PLETAL [Concomitant]
     Active Substance: CILOSTAZOL
  5. FLONASE [Concomitant]
     Active Substance: FLUTICASONE PROPIONATE
  6. APREZOLINE [Concomitant]
  7. LORAZEPAM. [Suspect]
     Active Substance: LORAZEPAM
     Dosage: 0.5MG  PRN  IV?RECENT
     Route: 042
  8. APAP [Concomitant]
     Active Substance: ACETAMINOPHEN
  9. NORVASC [Concomitant]
     Active Substance: AMLODIPINE BESYLATE
  10. REFRESSH [Concomitant]
  11. NEURONTIN [Concomitant]
     Active Substance: GABAPENTIN
  12. LORAZEPAM. [Suspect]
     Active Substance: LORAZEPAM
     Indication: ANXIETY
     Dosage: 0.5MG  PRN  IV?RECENT
     Route: 042
  13. LIPITOR [Concomitant]
     Active Substance: ATORVASTATIN CALCIUM
  14. CHOLECALCIFEROL [Concomitant]
     Active Substance: CHOLECALCIFEROL

REACTIONS (4)
  - Acute respiratory failure [None]
  - Encephalopathy [None]
  - Unresponsive to stimuli [None]
  - Respiratory distress [None]

NARRATIVE: CASE EVENT DATE: 20150326
